FAERS Safety Report 5006621-X (Version None)
Quarter: 2006Q2

REPORT INFORMATION
  Report Type: 
  Country: None (occurrence: None)
  Receive Date: 20060516
  Receipt Date: 20060505
  Transmission Date: 20061013
  Serious: Yes (Other)
  Sender: FDA-Public Use
  Company Number: FR-2006-011399

PATIENT
  Age: 37 Year
  Sex: Female

DRUGS (1)
  1. MIRENA [Suspect]

REACTIONS (7)
  - ESCHERICHIA INFECTION [None]
  - HAEMORRHAGIC OVARIAN CYST [None]
  - MYCOPLASMA INFECTION [None]
  - PELVIC VENOUS THROMBOSIS [None]
  - PULMONARY EMBOLISM [None]
  - SALPINGITIS [None]
  - SMEAR VAGINAL ABNORMAL [None]
